FAERS Safety Report 25761832 (Version 2)
Quarter: 2025Q3

REPORT INFORMATION
  Report Type: Spontaneous
  Country: US (occurrence: US)
  Receive Date: 20250904
  Receipt Date: 20250922
  Transmission Date: 20251020
  Serious: Yes (Other)
  Sender: TEVA
  Company Number: US-TEVA-VS-3366881

PATIENT
  Age: 24 Year
  Sex: Female

DRUGS (3)
  1. FLUCONAZOLE [Suspect]
     Active Substance: FLUCONAZOLE
     Indication: Vulvovaginal candidiasis
     Route: 065
  2. PYRIDOSTIGMINE [Suspect]
     Active Substance: PYRIDOSTIGMINE
     Indication: Antiacetylcholine receptor antibody positive
     Route: 065
  3. ECULIZUMAB [Suspect]
     Active Substance: ECULIZUMAB
     Indication: Antiacetylcholine receptor antibody positive
     Route: 065

REACTIONS (4)
  - Disseminated gonococcal infection [Recovering/Resolving]
  - Maternal exposure during pregnancy [Unknown]
  - Vulvovaginal candidiasis [Recovered/Resolved]
  - Live birth [Unknown]
